FAERS Safety Report 8217260-1 (Version None)
Quarter: 2012Q1

REPORT INFORMATION
  Report Type: 
  Country: None (occurrence: None)
  Receive Date: 20120319
  Receipt Date: 20120314
  Transmission Date: 20120608
  Serious: No
  Sender: FDA-Public Use
  Company Number: US-PFIZER INC-2012067722

PATIENT
  Sex: Female
  Weight: 57.143 kg

DRUGS (4)
  1. LEVOTHYROXINE [Concomitant]
     Indication: HYPOTHYROIDISM
     Dosage: UNK
  2. QUINAPRIL HCL [Suspect]
     Indication: HYPERTENSION
     Dosage: 40 MG, 1X/DAY
     Route: 048
  3. ACCUPRIL [Suspect]
     Indication: HYPERTENSION
     Dosage: 40 MG, 1X/DAY
     Route: 048
  4. ACCUPRIL [Suspect]
     Dosage: 40 MG, 1X/DAY
     Route: 048

REACTIONS (2)
  - DIZZINESS [None]
  - BLOOD CHOLESTEROL INCREASED [None]
